FAERS Safety Report 15004405 (Version 1)
Quarter: 2018Q2

REPORT INFORMATION
  Report Type: Spontaneous
  Country: US (occurrence: US)
  Receive Date: 20180613
  Receipt Date: 20180613
  Transmission Date: 20180711
  Serious: Yes (Hospitalization)
  Sender: FDA-Public Use
  Company Number: US-TEVA-2018-US-903418

PATIENT
  Sex: Male
  Weight: 66.74 kg

DRUGS (1)
  1. EPOPROSTENOL SODIUM. [Suspect]
     Active Substance: EPOPROSTENOL SODIUM
     Dosage: 62NG/KG/MIN
     Route: 042
     Dates: start: 20161004

REACTIONS (1)
  - Hospitalisation [Unknown]
